FAERS Safety Report 5943113-5 (Version None)
Quarter: 2008Q4

REPORT INFORMATION
  Report Type: 
  Country: None (occurrence: None)
  Receive Date: 20081106
  Receipt Date: 20081027
  Transmission Date: 20090506
  Serious: Yes (Death)
  Sender: FDA-Public Use
  Company Number: JP-ABBOTT-08P-087-0480251-00

PATIENT
  Age: 78 Year
  Sex: Male

DRUGS (4)
  1. LEUPROLIDE ACETATE [Suspect]
     Indication: PROSTATE CANCER STAGE I
     Route: 058
     Dates: start: 20060622, end: 20071115
  2. PROPIVERINE HYDROCHLORIDE [Concomitant]
     Indication: BENIGN PROSTATIC HYPERPLASIA
     Route: 048
     Dates: end: 20060824
  3. AMITRIPTYLINE HCL [Concomitant]
     Indication: NEUROSIS
     Route: 048
     Dates: end: 20060824
  4. NAFTOPIDIL [Concomitant]
     Indication: BENIGN PROSTATIC HYPERPLASIA
     Route: 048

REACTIONS (3)
  - BEDRIDDEN [None]
  - DEMENTIA [None]
  - PNEUMONIA ASPIRATION [None]
